FAERS Safety Report 25295854 (Version 1)
Quarter: 2025Q2

REPORT INFORMATION
  Report Type: Spontaneous
  Country: US (occurrence: US)
  Receive Date: 20250511
  Receipt Date: 20250511
  Transmission Date: 20250717
  Serious: No
  Sender: SANOFI AVENTIS
  Company Number: US-SA-2025SA134089

PATIENT
  Age: 79 Year
  Sex: Female

DRUGS (19)
  1. DUPIXENT [Suspect]
     Active Substance: DUPILUMAB
     Indication: Asthma
     Route: 058
     Dates: start: 20240110, end: 202504
  2. ZEPBOUND [Concomitant]
     Active Substance: TIRZEPATIDE
  3. AMLODIPINE [Concomitant]
     Active Substance: AMLODIPINE BESYLATE
  4. IPRATROPIUM [Concomitant]
     Active Substance: IPRATROPIUM
  5. PAROXETINE [Concomitant]
     Active Substance: PAROXETINE
  6. LOSARTAN [Concomitant]
     Active Substance: LOSARTAN
  7. MONTELUKAST [Concomitant]
     Active Substance: MONTELUKAST
  8. BUDESONIDE [Concomitant]
     Active Substance: BUDESONIDE
  9. SIMVASTATIN [Concomitant]
     Active Substance: SIMVASTATIN
  10. AZELASTINE [Concomitant]
     Active Substance: AZELASTINE
  11. UNSPECIFIED INGREDIENT [Concomitant]
     Active Substance: UNSPECIFIED INGREDIENT
  12. PANTOPRAZOLE [Concomitant]
     Active Substance: PANTOPRAZOLE
  13. ALIGN [Concomitant]
     Active Substance: BIFIDOBACTERIUM LONGUM SUBSP. INFANTIS
  14. ADVAIR HFA [Concomitant]
     Active Substance: FLUTICASONE PROPIONATE\SALMETEROL XINAFOATE
  15. TRAZODONE [Concomitant]
     Active Substance: TRAZODONE HYDROCHLORIDE
  16. RESTASIS [Concomitant]
     Active Substance: CYCLOSPORINE
  17. HYOSCYAMINE [Concomitant]
     Active Substance: HYOSCYAMINE
  18. HYDROXYZINE [Concomitant]
     Active Substance: HYDROXYZINE HYDROCHLORIDE
  19. SYSTANE (HYPROMELLOSE 2910 (4000 MPA.S)) [Concomitant]
     Active Substance: HYPROMELLOSE 2910 (4000 MPA.S)

REACTIONS (1)
  - Sneezing [Unknown]

NARRATIVE: CASE EVENT DATE: 20250505
